FAERS Safety Report 15187393 (Version 2)
Quarter: 2019Q1

REPORT INFORMATION
  Report Type: Report from Study
  Country: US (occurrence: US)
  Receive Date: 20180723
  Receipt Date: 20190130
  Transmission Date: 20190417
  Serious: No
  Sender: FDA-Public Use
  Company Number: US-EXELIXIS-CABO-18014138

PATIENT
  Sex: Male

DRUGS (4)
  1. CABOMETYX [Suspect]
     Active Substance: CABOZANTINIB S-MALATE
     Indication: METASTASES TO LUNG
     Dosage: 60 MG, QD
     Route: 048
  2. ATENOLOL. [Concomitant]
     Active Substance: ATENOLOL
  3. AMLODIPINE BESILATE [Concomitant]
     Active Substance: AMLODIPINE BESYLATE
  4. PROBIOTIC [Concomitant]
     Active Substance: PROBIOTICS NOS

REACTIONS (3)
  - Off label use [Unknown]
  - Skin ulcer [Not Recovered/Not Resolved]
  - Decreased appetite [Not Recovered/Not Resolved]
